FAERS Safety Report 7308370-1 (Version None)
Quarter: 2011Q1

REPORT INFORMATION
  Report Type: 
  Country: None (occurrence: None)
  Receive Date: 20110223
  Receipt Date: 20110217
  Transmission Date: 20110831
  Serious: Yes (Life-Threatening, Hospitalization)
  Sender: FDA-Public Use
  Company Number: B0701537A

PATIENT
  Sex: Male

DRUGS (3)
  1. CEFTAZIDIMUM [Concomitant]
  2. ARIXTRA [Suspect]
     Route: 058
     Dates: start: 20110125, end: 20110129
  3. KETONAL [Concomitant]

REACTIONS (2)
  - RENAL FAILURE ACUTE [None]
  - TUBULOINTERSTITIAL NEPHRITIS [None]
